FAERS Safety Report 5149290-0 (Version None)
Quarter: 2006Q4

REPORT INFORMATION
  Report Type: 
  Country: None (occurrence: None)
  Receive Date: 20061113
  Receipt Date: 20061031
  Transmission Date: 20070319
  Serious: Yes (Hospitalization)
  Sender: FDA-Public Use
  Company Number: CH-GLAXOSMITHKLINE-B0445689A

PATIENT
  Age: 33 Year
  Sex: Female

DRUGS (8)
  1. METHADONE HCL [Suspect]
     Dosage: 120MG PER DAY
     Route: 065
  2. SALMETEROL + FLUTICASONE [Suspect]
     Indication: BRONCHITIS
     Route: 055
  3. ETODOLAC [Concomitant]
     Indication: CHEST PAIN
     Route: 065
  4. NSAID [Concomitant]
     Route: 065
  5. ALCOHOL [Concomitant]
     Route: 065
  6. BENZODIAZEPINES [Concomitant]
     Route: 065
  7. LORAZEPAM [Concomitant]
     Route: 065
  8. ZOLPIDEM TARTRATE [Concomitant]
     Route: 065

REACTIONS (12)
  - CHEST PAIN [None]
  - CIRCULATORY COLLAPSE [None]
  - CONVULSION [None]
  - DIZZINESS [None]
  - ELECTROCARDIOGRAM QT PROLONGED [None]
  - FATIGUE [None]
  - HEPATIC ENZYME INCREASED [None]
  - LOSS OF CONSCIOUSNESS [None]
  - SYNCOPE [None]
  - TORSADE DE POINTES [None]
  - VENTRICULAR EXTRASYSTOLES [None]
  - VENTRICULAR TACHYCARDIA [None]
